FAERS Safety Report 6765226-0 (Version None)
Quarter: 2010Q2

REPORT INFORMATION
  Report Type: 
  Country: None (occurrence: None)
  Receive Date: 20100610
  Receipt Date: 20100610
  Transmission Date: 20101027
  Serious: Yes (Death, Hospitalization)
  Sender: FDA-Public Use
  Company Number: None

PATIENT
  Sex: Female
  Weight: 64 kg

DRUGS (3)
  1. CARBOPLATIN [Suspect]
     Dosage: 475 MG
     Dates: end: 20100527
  2. ERBITUX [Suspect]
     Dosage: 676 MG
     Dates: end: 20100527
  3. TAXOL [Suspect]
     Dosage: 340 MG
     Dates: end: 20100527

REACTIONS (8)
  - ASTHENIA [None]
  - ATELECTASIS [None]
  - DEHYDRATION [None]
  - DIVERTICULUM [None]
  - INTESTINAL DILATATION [None]
  - NAUSEA [None]
  - PERITONEAL HAEMORRHAGE [None]
  - PLEURAL EFFUSION [None]
